FAERS Safety Report 10184880 (Version 2)
Quarter: 2014Q2

REPORT INFORMATION
  Report Type: Spontaneous
  Country: US (occurrence: US)
  Receive Date: 20140521
  Receipt Date: 20140625
  Transmission Date: 20141212
  Serious: Yes (Death)
  Sender: FDA-Public Use
  Company Number: US-ASTELLAS-2014US005570

PATIENT
  Age: 81 Year
  Sex: Male

DRUGS (2)
  1. XTANDI [Suspect]
     Indication: PROSTATE CANCER
     Route: 065
     Dates: start: 20131216, end: 201401
  2. LUPRON [Concomitant]
     Indication: PRODUCT USED FOR UNKNOWN INDICATION
     Dosage: UNK UNK, EVERY 3 MONTHS.
     Route: 065

REACTIONS (6)
  - Death [Fatal]
  - Drug intolerance [Unknown]
  - Condition aggravated [Unknown]
  - Fatigue [Unknown]
  - Decreased appetite [Unknown]
  - Flank pain [Unknown]
